FAERS Safety Report 5150369-8 (Version None)
Quarter: 2006Q4

REPORT INFORMATION
  Report Type: 
  Country: None (occurrence: None)
  Receive Date: 20061108
  Receipt Date: 20061025
  Transmission Date: 20070319
  Serious: Yes (Hospitalization)
  Sender: FDA-Public Use
  Company Number: 2006133380

PATIENT
  Age: 1 Day
  Sex: Male

DRUGS (4)
  1. ATARAX [Suspect]
     Dosage: PLACENTAL
     Route: 064
     Dates: start: 20060519, end: 20060605
  2. XANAX [Suspect]
     Dosage: PLACENTAL
     Route: 064
     Dates: start: 20060305, end: 20060405
  3. CHLORPROMAZINE HCL [Suspect]
     Dosage: PLACENTAL
     Route: 064
     Dates: start: 20050913, end: 20060605
  4. VICTAN (ETHYL LOFLAZEPATE) [Suspect]
     Dosage: PLACENTAL
     Route: 064
     Dates: start: 20060405, end: 20060519

REACTIONS (9)
  - DRUG EXPOSURE DURING PREGNANCY [None]
  - DRUG WITHDRAWAL SYNDROME NEONATAL [None]
  - DYSMORPHISM [None]
  - FEEDING DISORDER NEONATAL [None]
  - GINGIVAL HYPERTROPHY [None]
  - HIGH ARCHED PALATE [None]
  - HYPOTONIA NEONATAL [None]
  - NEONATAL DISORDER [None]
  - RETROGNATHIA [None]
